FAERS Safety Report 7976313 (Version 3)
Quarter: 2013Q1

REPORT INFORMATION
  Report Type: Spontaneous
  Country: US (occurrence: US)
  Receive Date: 20110606
  Receipt Date: 20130325
  Transmission Date: 20140127
  Serious: Yes (Hospitalization)
  Sender: FDA-Public Use
  Company Number: US-ASTRAZENECA-2010SE17766

PATIENT
  Age: 52 Year
  Sex: Female

DRUGS (2)
  1. SYMBICORT PMDI [Suspect]
     Dosage: 160/4.5 MCG TWO PUFFS TWICE DAILY
     Route: 055
  2. RHINOCORT AQUA [Suspect]
     Route: 045

REACTIONS (12)
  - Dyspnoea [Unknown]
  - Asthma [Unknown]
  - Malaise [Unknown]
  - Nervousness [Unknown]
  - Seasonal allergy [Unknown]
  - Skin sensitisation [Unknown]
  - Emotional distress [Unknown]
  - Blood pressure increased [Unknown]
  - Hypersensitivity [Unknown]
  - Rash macular [Unknown]
  - Intentional drug misuse [Unknown]
  - Drug dose omission [Unknown]
